FAERS Safety Report 7206081-4 (Version None)
Quarter: 2010Q4

REPORT INFORMATION
  Report Type: 
  Country: None (occurrence: None)
  Receive Date: 20101229
  Receipt Date: 20101229
  Transmission Date: 20110411
  Serious: Yes (Death)
  Sender: FDA-Public Use
  Company Number: None

PATIENT
  Sex: Female
  Weight: 117.9352 kg

DRUGS (2)
  1. FENTANYL-75 [Suspect]
     Indication: DEEP VEIN THROMBOSIS
     Dates: start: 20040401, end: 20100601
  2. FENTANYL-75 [Suspect]
     Indication: PAIN
     Dates: start: 20040401, end: 20100601

REACTIONS (1)
  - ANALGESIC DRUG LEVEL INCREASED [None]
